FAERS Safety Report 8098372-2 (Version None)
Quarter: 2012Q1

REPORT INFORMATION
  Report Type: 
  Country: None (occurrence: None)
  Receive Date: 20120131
  Receipt Date: 20120125
  Transmission Date: 20120608
  Serious: Yes (Hospitalization, Other)
  Sender: FDA-Public Use
  Company Number: IT-ABBOTT-12P-083-0898451-00

PATIENT
  Age: 30 Year
  Sex: Female

DRUGS (7)
  1. EVEROLIMUS [Concomitant]
  2. CYCLOSPORINE [Suspect]
  3. CYCLOSPORINE [Suspect]
     Indication: IMMUNOSUPPRESSION
  4. CYCLOSPORINE [Suspect]
  5. EVEROLIMUS [Concomitant]
     Indication: IMMUNOSUPPRESSION
  6. STEROIDS [Concomitant]
  7. STEROIDS [Concomitant]
     Indication: IMMUNOSUPPRESSION

REACTIONS (4)
  - TUBULOINTERSTITIAL NEPHRITIS [None]
  - TRANSPLANT REJECTION [None]
  - RENAL IMPAIRMENT [None]
  - HYPERTENSION [None]
